FAERS Safety Report 7811331-7 (Version None)
Quarter: 2011Q4

REPORT INFORMATION
  Report Type: 
  Country: None (occurrence: None)
  Receive Date: 20111013
  Receipt Date: 20111007
  Transmission Date: 20120403
  Serious: Yes (Hospitalization, Other)
  Sender: FDA-Public Use
  Company Number: GB-PFIZER INC-2011240149

PATIENT
  Age: 75 Year
  Sex: Female

DRUGS (6)
  1. MARCAINE [Concomitant]
     Dosage: 10 ML 0.5%
  2. NIFEDIPINE [Concomitant]
  3. WARFARIN [Concomitant]
  4. DEPO-MEDROL [Suspect]
     Indication: OSTEOARTHRITIS
     Dosage: 80 MG, UNK
     Route: 014
  5. FUROSEMIDE [Concomitant]
  6. DIGOXIN [Concomitant]

REACTIONS (1)
  - PSYCHOTIC DISORDER [None]
